FAERS Safety Report 24426233 (Version 2)
Quarter: 2024Q4

REPORT INFORMATION
  Report Type: Spontaneous
  Country: ES (occurrence: ES)
  Receive Date: 20241011
  Receipt Date: 20241030
  Transmission Date: 20250115
  Serious: Yes (Other)
  Sender: RANBAXY
  Company Number: ES-SUN PHARMACEUTICAL INDUSTRIES LTD-2024R1-472814

PATIENT
  Age: 76 Year
  Sex: Male

DRUGS (2)
  1. METHYLPREDNISOLONE [Suspect]
     Active Substance: METHYLPREDNISOLONE
     Indication: Cytokine release syndrome
     Dosage: 1 MILLIGRAM/KILOGRAM, QD
     Route: 042
  2. PREDNISONE [Suspect]
     Active Substance: PREDNISONE
     Indication: Cytokine release syndrome
     Dosage: 5 MILLIGRAM
     Route: 048

REACTIONS (1)
  - Disease recurrence [Unknown]
